FAERS Safety Report 9983801 (Version 2)
Quarter: 2014Q1

REPORT INFORMATION
  Report Type: Spontaneous
  Country: CA (occurrence: CA)
  Receive Date: 20140307
  Receipt Date: 20140307
  Transmission Date: 20141002
  Serious: Yes (Hospitalization)
  Sender: FDA-Public Use
  Company Number: CA-BAXTER-2014BAX007798

PATIENT
  Age: 77 Year
  Sex: Male

DRUGS (6)
  1. DIANEAL PD4 SOLUTION WITH 1.5% DEXTROSE AND 2.5 MEQ/L CALCIUM [Suspect]
     Indication: RENAL DISORDER
     Route: 033
     Dates: start: 200704
  2. DIANEAL PD4 SOLUTION WITH 1.5% DEXTROSE AND 2.5 MEQ/L CALCIUM [Suspect]
     Indication: PERITONEAL DIALYSIS
  3. DIANEAL PD4 SOLUTION WITH 1.5% DEXTROSE AND 2.5 MEQ/L CALCIUM [Suspect]
     Indication: PERITONEAL DIALYSIS
  4. EXTRANEAL [Suspect]
     Indication: RENAL DISORDER
     Route: 033
     Dates: start: 200704, end: 20140226
  5. EXTRANEAL [Suspect]
     Indication: PERITONEAL DIALYSIS
  6. EXTRANEAL [Suspect]
     Indication: PERITONEAL DIALYSIS

REACTIONS (5)
  - Clostridium difficile colitis [Recovering/Resolving]
  - Myocardial infarction [Recovered/Resolved]
  - Coronary artery occlusion [Recovered/Resolved]
  - Pulmonary thrombosis [Recovered/Resolved]
  - Dehydration [Recovering/Resolving]
